FAERS Safety Report 12440801 (Version 1)
Quarter: 2016Q2

REPORT INFORMATION
  Report Type: Spontaneous
  Country: US (occurrence: US)
  Receive Date: 20160607
  Receipt Date: 20160607
  Transmission Date: 20160815
  Serious: No
  Sender: FDA-Public Use
  Company Number: US-TEVA-660251ACC

PATIENT
  Age: 18 Year
  Sex: Female
  Weight: 48.12 kg

DRUGS (3)
  1. CISPLATIN. [Concomitant]
     Active Substance: CISPLATIN
     Indication: THYROID DISORDER
  2. TAKE ACTION [Suspect]
     Active Substance: LEVONORGESTREL
     Indication: POST COITAL CONTRACEPTION
     Dates: start: 20160508, end: 20160508
  3. TAKE ACTION [Suspect]
     Active Substance: LEVONORGESTREL
     Dates: start: 20160507, end: 20160507

REACTIONS (3)
  - Nausea [Unknown]
  - Rash [Unknown]
  - Pain [Unknown]

NARRATIVE: CASE EVENT DATE: 20160510
